FAERS Safety Report 11680636 (Version 3)
Quarter: 2015Q4

REPORT INFORMATION
  Report Type: Spontaneous
  Country: US (occurrence: US)
  Receive Date: 20151027
  Receipt Date: 20151110
  Transmission Date: 20160304
  Serious: No
  Sender: FDA-Public Use
  Company Number: US-ELI_LILLY_AND_COMPANY-US201011005742

PATIENT
  Age: 55 Year
  Sex: Female

DRUGS (2)
  1. FORTEO [Suspect]
     Active Substance: TERIPARATIDE
     Dosage: 20 UG, DAILY (1/D)
  2. FORTEO [Suspect]
     Active Substance: TERIPARATIDE
     Indication: OSTEOPOROSIS
     Dosage: 20 UG, DAILY (1/D)
     Dates: start: 201010

REACTIONS (18)
  - Rhinorrhoea [Unknown]
  - Feeling cold [Unknown]
  - Vision blurred [Unknown]
  - Asthenopia [Unknown]
  - Drug dose omission [Unknown]
  - Movement disorder [Not Recovered/Not Resolved]
  - Burning sensation [Not Recovered/Not Resolved]
  - Eye infection [Unknown]
  - Bone pain [Unknown]
  - Muscle tightness [Unknown]
  - Musculoskeletal discomfort [Unknown]
  - Nasopharyngitis [Unknown]
  - Somnolence [Unknown]
  - Eye swelling [Unknown]
  - Ocular hyperaemia [Unknown]
  - Weight decreased [Unknown]
  - Dizziness [Unknown]
  - Medication error [Unknown]

NARRATIVE: CASE EVENT DATE: 20101214
